FAERS Safety Report 6258474-X (Version None)
Quarter: 2009Q3

REPORT INFORMATION
  Report Type: 
  Country: None (occurrence: None)
  Receive Date: 20090707
  Receipt Date: 20090625
  Transmission Date: 20100115
  Serious: Yes (Life-Threatening, Hospitalization, Other)
  Sender: FDA-Public Use
  Company Number: JP-PFIZER INC-2009219351

PATIENT
  Age: 0 Day

DRUGS (5)
  1. HALCION [Suspect]
  2. TOLEDOMIN [Suspect]
  3. DEPAS [Suspect]
  4. MEILAX [Suspect]
  5. CERCINE [Suspect]

REACTIONS (3)
  - DRUG EXPOSURE DURING PREGNANCY [None]
  - PANCYTOPENIA [None]
  - PREMATURE BABY [None]
